FAERS Safety Report 25038424 (Version 1)
Quarter: 2025Q1

REPORT INFORMATION
  Report Type: Spontaneous
  Country: AR (occurrence: AR)
  Receive Date: 20250304
  Receipt Date: 20250304
  Transmission Date: 20250409
  Serious: Yes (Other)
  Sender: PFIZER
  Company Number: AR-PFIZER INC-202500047767

PATIENT
  Age: 78 Year
  Sex: Female

DRUGS (2)
  1. BRAFTOVI [Suspect]
     Active Substance: ENCORAFENIB
     Indication: Colorectal cancer metastatic
     Dosage: 300 MG, DAILY
     Dates: start: 20240923
  2. BRAFTOVI [Suspect]
     Active Substance: ENCORAFENIB
     Indication: BRAF V600E mutation positive

REACTIONS (4)
  - Colitis [Unknown]
  - Malaise [Unknown]
  - Diarrhoea [Unknown]
  - Disturbance in attention [Unknown]
